FAERS Safety Report 7434592-5 (Version None)
Quarter: 2011Q2

REPORT INFORMATION
  Report Type: 
  Country: None (occurrence: None)
  Receive Date: 20110425
  Receipt Date: 20110418
  Transmission Date: 20111010
  Serious: Yes (Other)
  Sender: FDA-Public Use
  Company Number: US-ASTRAZENECA-2007UW05059

PATIENT
  Age: 45 Year
  Sex: Female
  Weight: 113.4 kg

DRUGS (5)
  1. HALOPERIDOL [Concomitant]
  2. SEROQUEL [Suspect]
     Indication: AFFECTIVE DISORDER
     Dosage: 25 MG-150 MG
     Route: 048
     Dates: start: 20030501, end: 20061101
  3. SEROQUEL [Suspect]
     Indication: DEPRESSION
     Dosage: 25 MG-150 MG
     Route: 048
     Dates: start: 20030501, end: 20061101
  4. ARIPIPRAZOLE [Concomitant]
  5. CELEXA [Concomitant]

REACTIONS (7)
  - BLOOD CHOLESTEROL INCREASED [None]
  - LIMB INJURY [None]
  - OBESITY [None]
  - OVERWEIGHT [None]
  - GALLBLADDER DISORDER [None]
  - HYPERLIPIDAEMIA [None]
  - TYPE 2 DIABETES MELLITUS [None]
